FAERS Safety Report 21015107 (Version 1)
Quarter: 2022Q2

REPORT INFORMATION
  Report Type: Spontaneous
  Country: US (occurrence: US)
  Receive Date: 20220628
  Receipt Date: 20220628
  Transmission Date: 20220721
  Serious: Yes (Other)
  Sender: FDA-Public Use
  Company Number: US-BRISTOL-MYERS SQUIBB COMPANY-2022-058781

PATIENT
  Age: 84 Year
  Sex: Female
  Weight: 52.16 kg

DRUGS (1)
  1. REVLIMID [Suspect]
     Active Substance: LENALIDOMIDE
     Indication: Plasma cell myeloma
     Dosage: DAILY DAYS 1-21 EVERY 28 DAY
     Route: 048
     Dates: start: 20210513

REACTIONS (7)
  - Diarrhoea [Unknown]
  - Urticaria [Unknown]
  - Nausea [Unknown]
  - Dyspnoea [Unknown]
  - Anaemia [Unknown]
  - Cardiac failure congestive [Unknown]
  - Neuropathy peripheral [Unknown]

NARRATIVE: CASE EVENT DATE: 20220524
